APPROVED DRUG PRODUCT: PILOCARPINE HYDROCHLORIDE
Active Ingredient: PILOCARPINE HYDROCHLORIDE
Strength: 7.5MG
Dosage Form/Route: TABLET;ORAL
Application: A077248 | Product #002 | TE Code: AB
Applicant: IMPAX LABORATORIES INC
Approved: Mar 31, 2006 | RLD: No | RS: No | Type: RX